FAERS Safety Report 5109211-3 (Version None)
Quarter: 2006Q3

REPORT INFORMATION
  Report Type: 
  Country: None (occurrence: None)
  Receive Date: 20060920
  Receipt Date: 20060913
  Transmission Date: 20061208
  Serious: Yes (Hospitalization)
  Sender: FDA-Public Use
  Company Number: FR-BRISTOL-MYERS SQUIBB COMPANY-13508072

PATIENT
  Age: 56 Year
  Sex: Male
  Weight: 87 kg

DRUGS (13)
  1. PARAPLATIN [Suspect]
     Indication: SMALL CELL CARCINOMA
     Route: 042
     Dates: start: 20060523, end: 20060523
  2. VEPESID [Suspect]
     Indication: SMALL CELL CARCINOMA
     Dates: start: 20060523
  3. SOLUPRED [Concomitant]
  4. LOXEN [Concomitant]
  5. ZOLOFT [Concomitant]
  6. ASPIRIN [Concomitant]
  7. LASILIX [Concomitant]
  8. TARDYFERON [Concomitant]
  9. FOLIC ACID [Concomitant]
  10. AMLOR [Concomitant]
  11. SERESTA [Concomitant]
  12. NEXIUM [Concomitant]
  13. RADIOTHERAPY [Concomitant]

REACTIONS (1)
  - PULMONARY FIBROSIS [None]
